FAERS Safety Report 10053164 (Version 2)
Quarter: 2014Q2

REPORT INFORMATION
  Report Type: Spontaneous
  Country: US (occurrence: US)
  Receive Date: 20140402
  Receipt Date: 20140515
  Transmission Date: 20141212
  Serious: Yes (Death, Hospitalization, Other)
  Sender: FDA-Public Use
  Company Number: US-GILEAD-2014-0097964

PATIENT
  Age: 52 Year
  Sex: Female

DRUGS (13)
  1. SOVALDI [Suspect]
     Indication: CHRONIC HEPATITIS C
     Dosage: 400 MG, QD
     Route: 048
     Dates: start: 20131216, end: 20140314
  2. RIBASPHERE [Suspect]
     Indication: CHRONIC HEPATITIS C
     Dosage: 600 MG, BID
     Route: 048
     Dates: start: 20131217, end: 20140314
  3. ESCITALOPRAM OXALATE [Concomitant]
     Dosage: 20 MG, QD
     Route: 048
     Dates: start: 20130308
  4. HYOSCYAMINE SULFATE [Concomitant]
     Dosage: 0.125 MG, (3 TO 4 TABLETS DAILY) PRN
     Route: 048
     Dates: start: 20130812
  5. METHADONE HCL [Concomitant]
     Indication: BACK PAIN
     Dosage: 70 MG, QD
     Route: 048
  6. METHADONE HCL [Concomitant]
     Indication: MUSCULOSKELETAL PAIN
  7. NEOMYCIN SULFATE [Concomitant]
     Dosage: 1000 MG, BID
     Route: 048
     Dates: start: 20131230
  8. ONDANSETRON HCL [Concomitant]
     Dosage: 8 MG, (EVERY 8-HRS) PRN
     Route: 048
     Dates: start: 20140211
  9. OXYCODONE HCL [Concomitant]
     Dosage: 10 MG, UNK
     Route: 048
     Dates: start: 20140120
  10. PANTOPRAZOLE SODIUM [Concomitant]
     Dosage: 40 MG, QD (BEFORE BREAKFAST)
     Route: 048
  11. PROMETHAZINE HCL [Concomitant]
     Dosage: 25 MG, (EVERY 6-HRS) PRN
     Route: 048
  12. PROPRANOLOL HCL [Concomitant]
     Dosage: 80 MG, QD
     Route: 048
  13. SUCRALFATE [Concomitant]
     Dosage: 1 G, QID (BEFORE MEALS AND HS)
     Route: 048

REACTIONS (17)
  - Septic shock [Fatal]
  - Multi-organ failure [Fatal]
  - Nausea [Unknown]
  - Vomiting [Unknown]
  - Abdominal distension [Unknown]
  - Abdominal pain [Unknown]
  - Chronic hepatic failure [Unknown]
  - Ventricular tachycardia [Unknown]
  - Staphylococcal bacteraemia [Unknown]
  - Gastrointestinal haemorrhage [Unknown]
  - Respiratory failure [Unknown]
  - Renal failure acute [Unknown]
  - Disseminated intravascular coagulation [Unknown]
  - Acute myocardial infarction [Unknown]
  - Thrombocytopenia [Unknown]
  - Coagulopathy [Unknown]
  - Anaemia [Unknown]
